FAERS Safety Report 24335043 (Version 2)
Quarter: 2024Q3

REPORT INFORMATION
  Report Type: Spontaneous
  Country: US (occurrence: US)
  Receive Date: 20240918
  Receipt Date: 20240918
  Transmission Date: 20241017
  Serious: Yes (Life-Threatening, Other)
  Sender: ROCHE
  Company Number: US-BoehringerIngelheim-2024-BI-051031

PATIENT
  Age: 67 Year
  Sex: Female

DRUGS (1)
  1. METALYSE [Suspect]
     Active Substance: TENECTEPLASE
     Indication: Ischaemic stroke
     Route: 042

REACTIONS (3)
  - Angioedema [Not Recovered/Not Resolved]
  - Vessel puncture site haematoma [Not Recovered/Not Resolved]
  - Haemoglobin decreased [Not Recovered/Not Resolved]
